FAERS Safety Report 25390172 (Version 2)
Quarter: 2025Q3

REPORT INFORMATION
  Report Type: Spontaneous
  Country: AU (occurrence: AU)
  Receive Date: 20250603
  Receipt Date: 20250708
  Transmission Date: 20251020
  Serious: No
  Sender: PFIZER
  Company Number: AU-PFIZER INC-202500111822

PATIENT
  Age: 62 Year
  Sex: Female

DRUGS (1)
  1. ENBREL [Suspect]
     Active Substance: ETANERCEPT

REACTIONS (3)
  - Device safety feature issue [Unknown]
  - Device delivery system issue [Unknown]
  - Liquid product physical issue [Unknown]
